FAERS Safety Report 16659100 (Version 2)
Quarter: 2019Q3

REPORT INFORMATION
  Report Type: Report from Study
  Country: None (occurrence: US)
  Receive Date: 20190802
  Receipt Date: 20190916
  Transmission Date: 20191004
  Serious: Yes (Hospitalization)
  Sender: FDA-Public Use
  Company Number: US-ABBVIE-19K-163-2874211-00

PATIENT
  Sex: Female

DRUGS (1)
  1. HUMIRA [Suspect]
     Active Substance: ADALIMUMAB
     Indication: PSORIATIC ARTHROPATHY
     Dosage: CITRATE FREE
     Route: 058

REACTIONS (4)
  - Road traffic accident [Recovered/Resolved]
  - Suicide attempt [Recovering/Resolving]
  - Back injury [Unknown]
  - Intervertebral disc degeneration [Unknown]
